FAERS Safety Report 6397941-5 (Version None)
Quarter: 2009Q4

REPORT INFORMATION
  Report Type: 
  Country: None (occurrence: None)
  Receive Date: 20091013
  Receipt Date: 20091001
  Transmission Date: 20100525
  Serious: Yes (Hospitalization)
  Sender: FDA-Public Use
  Company Number: US-JNJFOC-20091001615

PATIENT
  Sex: Male
  Weight: 78.02 kg

DRUGS (16)
  1. REMICADE [Suspect]
     Route: 042
  2. REMICADE [Suspect]
     Route: 042
  3. REMICADE [Suspect]
     Dosage: APPROXIMATELY EVERY 2 MONTHS
     Route: 042
  4. REMICADE [Suspect]
     Route: 042
  5. REMICADE [Suspect]
     Route: 042
  6. REMICADE [Suspect]
     Route: 042
  7. REMICADE [Suspect]
     Route: 042
  8. REMICADE [Suspect]
     Dosage: INFUSIONS APPROXIMATELY EVERY 2 MONTHS
     Route: 042
  9. REMICADE [Suspect]
     Route: 042
  10. REMICADE [Suspect]
     Dosage: INFUSIONS APPROXIMATELY EVERY 2 MONTHS
     Route: 042
  11. REMICADE [Suspect]
     Route: 042
  12. REMICADE [Suspect]
     Indication: CROHN'S DISEASE
     Dosage: 7 INFUSIONS ADMINISTERED PRIOR TO ENROLLMENT
     Route: 042
  13. MOBIC [Suspect]
     Indication: MYALGIA
  14. MESALAMINE [Concomitant]
     Indication: CROHN'S DISEASE
  15. ACETAMINOPHEN [Concomitant]
     Indication: PREMEDICATION
  16. ANTIHISTAMINES [Concomitant]
     Indication: PREMEDICATION

REACTIONS (6)
  - COAGULOPATHY [None]
  - GASTRITIS EROSIVE [None]
  - HEPATIC FUNCTION ABNORMAL [None]
  - METABOLIC ACIDOSIS [None]
  - MYELODYSPLASTIC SYNDROME [None]
  - RENAL IMPAIRMENT [None]
